FAERS Safety Report 16134446 (Version 4)
Quarter: 2019Q2

REPORT INFORMATION
  Report Type: Report from Study
  Country: US (occurrence: US)
  Receive Date: 20190329
  Receipt Date: 20190612
  Transmission Date: 20190711
  Serious: Yes (Other)
  Sender: FDA-Public Use
  Company Number: PHEH2019US013579

PATIENT
  Age: 9 Year
  Sex: Male
  Weight: 26.9 kg

DRUGS (4)
  1. ILARIS [Suspect]
     Active Substance: CANAKINUMAB
     Indication: STILL^S DISEASE
     Dosage: 100.5 MG, Q5W (CURRENTLY ON TAPER REGIMEN)
     Route: 058
     Dates: start: 201810
  2. ILARIS [Suspect]
     Active Substance: CANAKINUMAB
     Dosage: 100.5 MG, EVERY 6 WEEKS
     Route: 058
     Dates: start: 20190509
  3. QVAR [Concomitant]
     Active Substance: BECLOMETHASONE DIPROPIONATE
     Indication: ASTHMA
     Dosage: UNK UNK, BID
     Route: 055
  4. ALBUTEROL. [Concomitant]
     Active Substance: ALBUTEROL
     Indication: ASTHMA
     Dosage: UNK UNK, PRN
     Route: 055

REACTIONS (7)
  - Malaise [Unknown]
  - Pyrexia [Recovering/Resolving]
  - Fatigue [Unknown]
  - Decreased appetite [Unknown]
  - Pertussis [Recovered/Resolved]
  - Arthralgia [Unknown]
  - Diarrhoea [Recovering/Resolving]

NARRATIVE: CASE EVENT DATE: 20190316
